FAERS Safety Report 7605425-9 (Version None)
Quarter: 2011Q3

REPORT INFORMATION
  Report Type: 
  Country: None (occurrence: None)
  Receive Date: 20110705
  Receipt Date: 20110624
  Transmission Date: 20111222
  Serious: Yes (Hospitalization)
  Sender: FDA-Public Use
  Company Number: GB-ACCORD-007765

PATIENT
  Age: 16 Year
  Sex: Female
  Weight: 60 kg

DRUGS (3)
  1. CLOBAZAM(CLOBAZAM) [Concomitant]
  2. LAMOTRIGINE [Concomitant]
  3. TOPIRAMATE [Suspect]
     Indication: EPILEPSY
     Dosage: 150.00-MG-2.00 TIMES PER-1.0DAYS / ORAL
     Route: 048
     Dates: start: 20101108, end: 20101210

REACTIONS (4)
  - DEPERSONALISATION [None]
  - MEMORY IMPAIRMENT [None]
  - SENSORY DISTURBANCE [None]
  - HALLUCINATION, VISUAL [None]
